FAERS Safety Report 8445339-8 (Version None)
Quarter: 2012Q2

REPORT INFORMATION
  Report Type: 
  Country: None (occurrence: None)
  Receive Date: 20120618
  Receipt Date: 20120606
  Transmission Date: 20120825
  Serious: Yes (Other)
  Sender: FDA-Public Use
  Company Number: US-ELI_LILLY_AND_COMPANY-US201203008996

PATIENT
  Sex: Male
  Weight: 101.13 kg

DRUGS (46)
  1. OLANZAPINE [Suspect]
     Dosage: 300 MG, UNK
     Route: 030
     Dates: start: 20100826
  2. OLANZAPINE [Suspect]
     Dosage: 300 MG, UNK
     Route: 030
     Dates: start: 20100908
  3. OLANZAPINE [Suspect]
     Dosage: 300 MG, UNK
     Route: 030
     Dates: start: 20110118
  4. OLANZAPINE [Suspect]
     Dosage: 300 MG, UNK
     Route: 030
     Dates: start: 20110510
  5. OLANZAPINE [Suspect]
     Dosage: 300 MG, UNK
     Route: 030
     Dates: start: 20110525
  6. OLANZAPINE [Suspect]
     Dosage: 300 MG, UNK
     Route: 030
     Dates: start: 20110608
  7. OLANZAPINE [Suspect]
     Dosage: 300 MG, UNK
     Route: 030
     Dates: start: 20110803
  8. OLANZAPINE [Suspect]
     Dosage: 300 MG, UNK
     Route: 030
     Dates: start: 20111207
  9. OLANZAPINE [Suspect]
     Dosage: 300 MG, UNK
     Route: 030
     Dates: start: 20101214
  10. OLANZAPINE [Suspect]
     Dosage: 300 MG, UNK
     Route: 030
     Dates: start: 20110208
  11. OLANZAPINE [Suspect]
     Dosage: 300 MG, UNK
     Route: 030
     Dates: start: 20111025
  12. OLANZAPINE [Suspect]
     Dosage: 300 MG, UNK
     Route: 030
     Dates: start: 20120104
  13. OLANZAPINE [Suspect]
     Dosage: 300 MG, UNK
     Route: 030
     Dates: start: 20120214
  14. OLANZAPINE [Suspect]
     Dosage: 300 MG, UNK
     Route: 030
     Dates: start: 20120229
  15. OLANZAPINE [Suspect]
     Dosage: 300 MG, UNK
     Route: 030
     Dates: start: 20100805
  16. OLANZAPINE [Suspect]
     Dosage: 300 MG, UNK
     Route: 030
     Dates: start: 20100924
  17. OLANZAPINE [Suspect]
     Dosage: 300 MG, UNK
     Route: 030
     Dates: start: 20101130
  18. OLANZAPINE [Suspect]
     Dosage: 300 MG, UNK
     Route: 030
     Dates: start: 20110322
  19. OLANZAPINE [Suspect]
     Dosage: 300 MG, UNK
     Route: 030
     Dates: start: 20110622
  20. OLANZAPINE [Suspect]
     Dosage: 300 MG, UNK
     Route: 030
     Dates: start: 20110913
  21. OLANZAPINE [Suspect]
     Dosage: 300 MG, UNK
     Route: 030
     Dates: start: 20101007
  22. OLANZAPINE [Suspect]
     Dosage: 300 MG, UNK
     Route: 030
     Dates: start: 20110222
  23. OLANZAPINE [Suspect]
     Dosage: 300 MG, UNK
     Route: 030
     Dates: start: 20111012
  24. OLANZAPINE [Suspect]
     Dosage: 300 MG, UNK
     Route: 030
     Dates: start: 20120314
  25. DEPAKOTE ER [Concomitant]
     Dosage: 500 MG, BID
  26. OLANZAPINE [Suspect]
     Dosage: 300 MG, UNK
     Route: 030
     Dates: start: 20110719
  27. OLANZAPINE [Suspect]
     Dosage: 300 MG, UNK
     Route: 030
     Dates: start: 20120201
  28. OLANZAPINE [Suspect]
     Dosage: 300 MG, UNK
     Route: 030
     Dates: start: 20101116
  29. OLANZAPINE [Suspect]
     Dosage: 300 MG, UNK
     Route: 030
     Dates: start: 20110308
  30. OLANZAPINE [Suspect]
     Dosage: 300 MG, UNK
     Route: 030
     Dates: start: 20110427
  31. OLANZAPINE [Suspect]
     Dosage: 300 MG, UNK
     Route: 030
     Dates: start: 20111123
  32. OLANZAPINE [Suspect]
     Dosage: 300 MG, UNK
     Route: 030
     Dates: start: 20111221
  33. OLANZAPINE [Suspect]
     Dosage: 300 MG, UNK
     Route: 030
     Dates: start: 20120118
  34. PRISTIQ [Concomitant]
     Dosage: 50 MG, QD
  35. KLONOPIN [Concomitant]
     Dosage: 0.5 MG, BID
  36. OLANZAPINE [Suspect]
     Indication: SCHIZOPHRENIA
     Dosage: 150 MG, UNK
     Route: 030
     Dates: start: 20100721
  37. OLANZAPINE [Suspect]
     Dosage: 300 MG, UNK
     Route: 030
     Dates: start: 20101103
  38. OLANZAPINE [Suspect]
     Dosage: 300 MG, UNK
     Route: 030
     Dates: start: 20110816
  39. OLANZAPINE [Suspect]
     Dosage: 300 MG, UNK
     Route: 030
     Dates: start: 20111109
  40. OLANZAPINE [Suspect]
     Dosage: 300 MG, UNK
     Route: 030
     Dates: start: 20101020
  41. OLANZAPINE [Suspect]
     Dosage: 300 MG, UNK
     Route: 030
     Dates: start: 20110104
  42. OLANZAPINE [Suspect]
     Dosage: 300 MG, UNK
     Route: 030
     Dates: start: 20110706
  43. OLANZAPINE [Suspect]
     Dosage: 300 MG, UNK
     Route: 030
     Dates: start: 20110830
  44. OLANZAPINE [Suspect]
     Dosage: 300 MG, UNK
     Route: 030
     Dates: start: 20110927
  45. OLANZAPINE [Suspect]
     Dosage: 300 MG, UNK
     Route: 030
     Dates: start: 20120328
  46. TRAZODONE HCL [Concomitant]
     Dosage: 300 MG, EACH EVENING

REACTIONS (11)
  - DISORIENTATION [None]
  - DEPRESSED LEVEL OF CONSCIOUSNESS [None]
  - DIZZINESS [None]
  - CHEST PAIN [None]
  - TONGUE DISORDER [None]
  - ANXIETY [None]
  - ASTHENIA [None]
  - DELIRIUM [None]
  - SEDATION [None]
  - CONFUSIONAL STATE [None]
  - HYPERHIDROSIS [None]
